FAERS Safety Report 9236146 (Version 5)
Quarter: 2014Q1

REPORT INFORMATION
  Report Type: Spontaneous
  Country: US (occurrence: US)
  Receive Date: 20130417
  Receipt Date: 20140129
  Transmission Date: 20141002
  Serious: Yes (Hospitalization, Other)
  Sender: FDA-Public Use
  Company Number: US-009507513-1304USA003985

PATIENT
  Sex: Female
  Weight: 49.89 kg

DRUGS (4)
  1. FOSAMAX [Suspect]
     Indication: OSTEOPOROSIS
     Dosage: 70 MG, QW
     Route: 048
     Dates: start: 20020715, end: 20051016
  2. FOSAMAX PLUS D [Suspect]
     Indication: OSTEOPOROSIS
     Dosage: 70 MG, QW/2,800IU +D
     Route: 048
     Dates: start: 20051202, end: 20080501
  3. ALENDRONATE SODIUM [Suspect]
     Dosage: 70 MG, UNK
  4. NORVASC [Concomitant]
     Indication: HYPERTENSION
     Dosage: 5 MG, BID
     Route: 048

REACTIONS (21)
  - Femur fracture [Unknown]
  - Open reduction of fracture [Unknown]
  - Atrial fibrillation [Unknown]
  - Anaemia postoperative [Unknown]
  - Haematoma [Recovering/Resolving]
  - Hyperbilirubinaemia [Recovered/Resolved]
  - Hyponatraemia [Unknown]
  - Type 2 diabetes mellitus [Not Recovered/Not Resolved]
  - Impaired healing [Unknown]
  - Medical device removal [Unknown]
  - Bursitis [Unknown]
  - Atrial fibrillation [Unknown]
  - Fracture nonunion [Unknown]
  - Cardiomegaly [Unknown]
  - Cataract operation [Unknown]
  - Hysterectomy [Unknown]
  - Bone disorder [Unknown]
  - Osteopenia [Unknown]
  - Thrombocytopenia [Unknown]
  - Constipation [Unknown]
  - Arthralgia [Unknown]
